FAERS Safety Report 5187664-2 (Version None)
Quarter: 2006Q4

REPORT INFORMATION
  Report Type: 
  Country: None (occurrence: None)
  Receive Date: 20061213
  Receipt Date: 20060515
  Transmission Date: 20070319
  Serious: Yes (Hospitalization, Other)
  Sender: FDA-Public Use
  Company Number: 2006-05-0090

PATIENT
  Age: 11 Year
  Sex: Male

DRUGS (2)
  1. CLARITIN [Suspect]
     Indication: RHINORRHOEA
     Dosage: PO
     Route: 048
     Dates: start: 20060430
  2. MOTRIN [Concomitant]

REACTIONS (6)
  - AMNESIA [None]
  - CONVULSION [None]
  - FEELING HOT [None]
  - LOSS OF CONSCIOUSNESS [None]
  - PHARMACEUTICAL PRODUCT COMPLAINT [None]
  - POSTICTAL STATE [None]
